FAERS Safety Report 10935360 (Version 3)
Quarter: 2015Q2

REPORT INFORMATION
  Report Type: Spontaneous
  Country: US (occurrence: US)
  Receive Date: 20150320
  Receipt Date: 20150427
  Transmission Date: 20150821
  Serious: Yes (Other)
  Sender: FDA-Public Use
  Company Number: US-ACTAVIS-2015-05073

PATIENT
  Age: 68 Year
  Sex: Female
  Weight: 46 kg

DRUGS (3)
  1. REMODULIN [Suspect]
     Active Substance: TREPROSTINIL
     Indication: PULMONARY HYPERTENSION
     Dosage: 12 NG/KG/MIN
     Route: 058
     Dates: start: 20150223
  2. NORCO [Suspect]
     Active Substance: ACETAMINOPHEN\HYDROCODONE BITARTRATE
     Indication: PRODUCT USED FOR UNKNOWN INDICATION
     Dosage: UNK, UNKNOWN
     Route: 065
  3. REMODULIN [Suspect]
     Active Substance: TREPROSTINIL
     Dosage: UNK

REACTIONS (8)
  - Dizziness [Unknown]
  - Hypertension [Unknown]
  - Infusion site pain [Not Recovered/Not Resolved]
  - Loss of consciousness [Unknown]
  - Wheezing [Unknown]
  - Decreased appetite [Unknown]
  - Dyspnoea [Unknown]
  - Infusion site inflammation [Unknown]

NARRATIVE: CASE EVENT DATE: 201502
